FAERS Safety Report 10350674 (Version 1)
Quarter: 2014Q3

REPORT INFORMATION
  Report Type: Spontaneous
  Country: US (occurrence: None)
  Receive Date: 20140728
  Receipt Date: 20140728
  Transmission Date: 20150326
  Serious: No
  Sender: FDA-Public Use
  Company Number: None

PATIENT
  Age: 32 Year
  Sex: Female
  Weight: 135.63 kg

DRUGS (1)
  1. SALONPAS DEEP RELIEVING [Suspect]
     Active Substance: CAMPHOR (SYNTHETIC)\MENTHOL\METHYL SALICYLATE
     Indication: MUSCULOSKELETAL PAIN
     Dates: start: 20140727, end: 20140727

REACTIONS (2)
  - Sensory disturbance [None]
  - Asthma [None]

NARRATIVE: CASE EVENT DATE: 20140727
